FAERS Safety Report 5671195-7 (Version None)
Quarter: 2008Q1

REPORT INFORMATION
  Report Type: 
  Country: None (occurrence: None)
  Receive Date: 20080318
  Receipt Date: 20080307
  Transmission Date: 20080703
  Serious: Yes (Death)
  Sender: FDA-Public Use
  Company Number: JP-ELI_LILLY_AND_COMPANY-JP200802005178

PATIENT
  Sex: Female
  Weight: 40 kg

DRUGS (3)
  1. RALOXIFENE HYDROCHLORIDE [Suspect]
     Indication: OSTEOPOROSIS POSTMENOPAUSAL
     Dosage: 60 MG, DAILY (1/D)
     Route: 048
     Dates: start: 20050108
  2. ALFACALCIDOL [Concomitant]
     Indication: OSTEOPOROSIS POSTMENOPAUSAL
     Dosage: 1 UG, DAILY (1/D)
     Route: 048
     Dates: start: 20040401
  3. ASPARTATE CALCIUM [Concomitant]
     Indication: OSTEOPOROSIS POSTMENOPAUSAL
     Dosage: 3 D/F, DAILY (1/D)
     Route: 048
     Dates: start: 20040401

REACTIONS (1)
  - CHOKING [None]
